FAERS Safety Report 11199685 (Version 1)
Quarter: 2015Q2

REPORT INFORMATION
  Report Type: Spontaneous
  Country: US (occurrence: None)
  Receive Date: 20150616
  Receipt Date: 20150616
  Transmission Date: 20150821
  Serious: No
  Sender: FDA-Public Use
  Company Number: None

PATIENT
  Age: 66 Year
  Sex: Female
  Weight: 79.38 kg

DRUGS (9)
  1. MULTIVITAMIN [Concomitant]
     Active Substance: VITAMINS
  2. PYRIDIUM [Suspect]
     Active Substance: PHENAZOPYRIDINE
     Indication: URINARY TRACT INFECTION
     Dosage: 100 MG TABLET AFTER MEALS 3X DAILY BY MOUTH
     Route: 048
     Dates: start: 20150424
  3. METFORMIN [Concomitant]
     Active Substance: METFORMIN HYDROCHLORIDE
  4. GLIPIZIDE ER [Concomitant]
     Active Substance: GLIPIZIDE
  5. LEVOTHYROXINE [Concomitant]
     Active Substance: LEVOTHYROXINE
  6. VAGAFEM [Concomitant]
  7. GLUCOSAMINE CONDROITIN [Concomitant]
  8. POTASSIUM GLUCONATE [Concomitant]
     Active Substance: POTASSIUM GLUCONATE
  9. BABY ASPIRIN [Concomitant]
     Active Substance: ASPIRIN

REACTIONS (2)
  - Tremor [None]
  - Feeling cold [None]

NARRATIVE: CASE EVENT DATE: 20150425
